FAERS Safety Report 14831902 (Version 1)
Quarter: 2018Q2

REPORT INFORMATION
  Report Type: Spontaneous
  Country: US (occurrence: US)
  Receive Date: 20180410
  Receipt Date: 20180410
  Transmission Date: 20180711
  Serious: Yes (Hospitalization)
  Sender: FDA-Public Use
  Company Number: None

PATIENT
  Sex: Female

DRUGS (11)
  1. SELENIUM [Concomitant]
     Active Substance: SELENIUM
  2. VITAMIN C [Concomitant]
     Active Substance: ASCORBIC ACID
  3. CAPECITABINE. [Suspect]
     Active Substance: CAPECITABINE
     Indication: NEOPLASM MALIGNANT
     Route: 048
     Dates: start: 20161019
  4. CALCIUM [Concomitant]
     Active Substance: CALCIUM
  5. FASLODEX [Concomitant]
     Active Substance: FULVESTRANT
  6. ATENOLOL. [Concomitant]
     Active Substance: ATENOLOL
  7. ZINC. [Concomitant]
     Active Substance: ZINC
  8. MULTIVITAMIN [Concomitant]
     Active Substance: VITAMINS
  9. NORVASC [Concomitant]
     Active Substance: AMLODIPINE BESYLATE
  10. XELODA [Concomitant]
     Active Substance: CAPECITABINE
  11. VASERETIC [Concomitant]
     Active Substance: ENALAPRIL MALEATE\HYDROCHLOROTHIAZIDE

REACTIONS (3)
  - Faecaloma [None]
  - Therapy cessation [None]
  - Cardiac failure congestive [None]
